FAERS Safety Report 10176686 (Version 1)
Quarter: 2014Q2

REPORT INFORMATION
  Report Type: Spontaneous
  Country: US (occurrence: None)
  Receive Date: 20140515
  Receipt Date: 20140515
  Transmission Date: 20141212
  Serious: Yes (Other)
  Sender: FDA-Public Use
  Company Number: None

PATIENT
  Age: 57 Year
  Sex: Female

DRUGS (16)
  1. ZIANA [Suspect]
     Indication: ACNE
     Dosage: 1.2% CLINDAMYCIN  PER SIZE AMOUNT, ONCE DAILY, ON THE SKIN
     Dates: start: 20140501, end: 20140503
  2. CYCLOBENZAPRINE [Concomitant]
  3. ESTRADIOL [Concomitant]
  4. LAMICTAL [Concomitant]
  5. SYNTHROID [Concomitant]
  6. RELAFEN [Concomitant]
  7. PRILOSEC [Concomitant]
  8. ZOLOFT [Concomitant]
  9. XANAX [Concomitant]
  10. BIOTIN [Concomitant]
  11. GELATIN CAPULES [Concomitant]
  12. IRON [Concomitant]
  13. GLUCOSAMINE [Concomitant]
  14. MULTI-VITAMIN WITH MINERALS [Concomitant]
  15. LYSINE [Concomitant]
  16. SELENIUM [Concomitant]

REACTIONS (5)
  - Rash generalised [None]
  - Headache [None]
  - Pyrexia [None]
  - Anger [None]
  - Rash pruritic [None]
